FAERS Safety Report 25912203 (Version 1)
Quarter: 2025Q4

REPORT INFORMATION
  Report Type: Spontaneous
  Country: TW (occurrence: TW)
  Receive Date: 20251013
  Receipt Date: 20251013
  Transmission Date: 20260117
  Serious: Yes (Life-Threatening, Other)
  Sender: ALEXION PHARMACEUTICALS
  Company Number: TW-ASTRAZENECA-202510ASI006629TW

PATIENT
  Age: 85 Year
  Sex: Female
  Weight: 54.4 kg

DRUGS (14)
  1. IMJUDO [Suspect]
     Active Substance: TREMELIMUMAB\TREMELIMUMAB-ACTL
     Dosage: UNK
     Route: 065
  2. IMFINZI [Suspect]
     Active Substance: DURVALUMAB
     Dosage: UNK
     Route: 065
  3. PREDONINE [Concomitant]
     Active Substance: PREDNISOLONE
     Indication: Hepatitis
     Dosage: UNK GRAM
     Route: 065
  4. NORVASC [Concomitant]
     Active Substance: AMLODIPINE BESYLATE
     Route: 065
  5. ASPIRIN [Concomitant]
     Active Substance: ASPIRIN
     Route: 065
  6. GLYXAMBI [Concomitant]
     Active Substance: EMPAGLIFLOZIN\LINAGLIPTIN
     Indication: Diabetes mellitus
     Dosage: UNK, QD
     Dates: start: 20250910, end: 20250920
  7. AMARYL [Concomitant]
     Active Substance: GLIMEPIRIDE
     Indication: Diabetes mellitus
     Dosage: UNK, QD
     Dates: start: 20250910, end: 20250920
  8. BISOPROLOL FUMARATE [Concomitant]
     Active Substance: BISOPROLOL FUMARATE
     Indication: Atrial fibrillation
     Dosage: 5 MILLIGRAM, QD
     Dates: start: 20250910, end: 20250920
  9. SPIRONOLACTONE [Concomitant]
     Active Substance: SPIRONOLACTONE
     Indication: Hypokalaemia
     Dosage: 25 MILLIGRAM, BID
     Dates: start: 20250915, end: 20250920
  10. DIETARY SUPPLEMENT\PROBIOTICS [Concomitant]
     Active Substance: DIETARY SUPPLEMENT\PROBIOTICS NOS
     Indication: Probiotic therapy
     Dosage: 6 MILLIGRAM, TID
     Dates: start: 20250910, end: 20250920
  11. RABEPRAZOLE [Concomitant]
     Active Substance: RABEPRAZOLE
     Indication: Gastrooesophageal reflux disease
     Dosage: UNK UNK, QD
     Dates: start: 20250910, end: 20250920
  12. BARACLUDE [Concomitant]
     Active Substance: ENTECAVIR
     Indication: Hepatitis B
     Dosage: UNK UNK, QD
     Dates: start: 20250910, end: 20250920
  13. Gouless [Concomitant]
     Indication: Hyperuricaemia
     Dosage: 50 MILLIGRAM, QD
  14. COLCHICINE [Concomitant]
     Active Substance: COLCHICINE
     Indication: Gout
     Dosage: 0.5 MILLIGRAM, BID
     Dates: start: 20250910, end: 20250915

REACTIONS (6)
  - Myocarditis [Recovering/Resolving]
  - Immune-mediated hepatitis [Unknown]
  - Atrial fibrillation [Unknown]
  - Diarrhoea [Unknown]
  - Orthopnoea [Unknown]
  - Oedema [Unknown]

NARRATIVE: CASE EVENT DATE: 20250909
